FAERS Safety Report 14084074 (Version 1)
Quarter: 2017Q4

REPORT INFORMATION
  Report Type: Spontaneous
  Country: FR (occurrence: FR)
  Receive Date: 20171013
  Receipt Date: 20171013
  Transmission Date: 20180321
  Serious: Yes (Hospitalization)
  Sender: FDA-Public Use
  Company Number: FR-ROCHE-2006702

PATIENT
  Age: 66 Year
  Sex: Male

DRUGS (4)
  1. AUGMENTIN [Concomitant]
     Active Substance: AMOXICILLIN\CLAVULANATE POTASSIUM
  2. DIFFU K [Concomitant]
     Active Substance: POTASSIUM CHLORIDE
  3. VALIUM [Suspect]
     Active Substance: DIAZEPAM
     Indication: TREMOR
  4. VALIUM [Suspect]
     Active Substance: DIAZEPAM
     Indication: DELIRIUM
     Route: 042
     Dates: start: 20170903, end: 20170903

REACTIONS (2)
  - Disturbance in attention [Recovered/Resolved]
  - Respiratory disorder [Recovered/Resolved]

NARRATIVE: CASE EVENT DATE: 20170906
